FAERS Safety Report 6599278-8 (Version None)
Quarter: 2010Q1

REPORT INFORMATION
  Report Type: 
  Country: None (occurrence: None)
  Receive Date: 20100224
  Receipt Date: 20100218
  Transmission Date: 20100710
  Serious: Yes (Hospitalization, Other)
  Sender: FDA-Public Use
  Company Number: US-ASTRAZENECA-2010SE07193

PATIENT
  Age: 577 Month
  Sex: Female
  Weight: 93 kg

DRUGS (11)
  1. SEROQUEL [Suspect]
     Indication: BIPOLAR DISORDER
     Route: 048
     Dates: start: 20090701
  2. SEROQUEL [Suspect]
     Indication: DEPRESSION
     Route: 048
     Dates: start: 20090701
  3. PROTONIX [Concomitant]
     Route: 048
  4. LEXAPRO [Concomitant]
     Route: 048
  5. PRAVACHOL [Concomitant]
     Route: 048
  6. HYDROCLORTHYAZIDE [Concomitant]
     Indication: DEHYDRATION
     Dosage: 37.5/25 MILLIGRAMS - DAILY
     Route: 048
  7. ASPIRIN [Concomitant]
     Indication: THROMBOSIS
     Route: 048
  8. COUMADIN [Concomitant]
     Indication: THROMBOSIS
     Route: 048
  9. DEPAKOTE [Concomitant]
     Route: 048
  10. BUSPIRONE HCL [Concomitant]
     Route: 048
  11. ADIVAN [Concomitant]
     Route: 065

REACTIONS (2)
  - PULMONARY THROMBOSIS [None]
  - THROMBOSIS [None]
